FAERS Safety Report 25052172 (Version 1)
Quarter: 2025Q1

REPORT INFORMATION
  Report Type: Spontaneous
  Country: US (occurrence: US)
  Receive Date: 20250307
  Receipt Date: 20250307
  Transmission Date: 20250408
  Serious: No
  Sender: PFIZER
  Company Number: US-PFIZER INC-PV202400023290

PATIENT
  Age: 74 Year
  Sex: Female
  Weight: 72.57 kg

DRUGS (4)
  1. BRAFTOVI [Suspect]
     Active Substance: ENCORAFENIB
     Indication: Malignant melanoma
     Dosage: 375 MG, 1X/DAY (TAKE 5 CAPSULES (375 MG) BY MOUTH ONCE DAILY WITH OR WITHOUT FOOD)
     Route: 048
     Dates: start: 2024
  2. BRAFTOVI [Suspect]
     Active Substance: ENCORAFENIB
     Dosage: 375 MG, 1X/DAY (TAKE 5 CAPSULES BY MORNING)
     Route: 048
  3. MEKTOVI [Suspect]
     Active Substance: BINIMETINIB
     Indication: Malignant melanoma
     Dates: start: 2024
  4. MEKTOVI [Suspect]
     Active Substance: BINIMETINIB
     Dosage: 75 MG, DAILY (THREE TABLETS IN THE MORNING AND 2 TABLETS AT NIGHT FOR THE MEKTOVI)

REACTIONS (3)
  - Gastrointestinal disorder [Unknown]
  - Vomiting [Unknown]
  - Off label use [Unknown]

NARRATIVE: CASE EVENT DATE: 20240101
